FAERS Safety Report 4714949-3 (Version None)
Quarter: 2005Q3

REPORT INFORMATION
  Report Type: 
  Country: None (occurrence: None)
  Receive Date: 20050715
  Receipt Date: 20040401
  Transmission Date: 20060218
  Serious: Yes (Hospitalization, Other)
  Sender: FDA-Public Use
  Company Number: BE-JNJFOC-20040304608

PATIENT
  Sex: Male

DRUGS (5)
  1. PROPULSID [Suspect]
     Route: 065
  2. CLAFORAN [Concomitant]
     Indication: PANCYTOPENIA
     Route: 048
  3. CLAFORAN [Concomitant]
     Indication: INFLUENZA
     Route: 048
  4. IMMUNE GLOBULIN INTRAVENOUS (HUMAN) [Concomitant]
     Route: 042
  5. LOSEC [Concomitant]
     Route: 065

REACTIONS (4)
  - HYPOGAMMAGLOBULINAEMIA [None]
  - INFLUENZA [None]
  - OESOPHAGOGASTRIC FUNDOPLASTY [None]
  - PNEUMONIA [None]
